FAERS Safety Report 17865719 (Version 1)
Quarter: 2020Q2

REPORT INFORMATION
  Report Type: Spontaneous
  Country: HR (occurrence: HR)
  Receive Date: 20200605
  Receipt Date: 20200605
  Transmission Date: 20200714
  Serious: Yes (Other)
  Sender: FDA-Public Use
  Company Number: HR-TEVA-2020-HR-1244150

PATIENT
  Sex: Female

DRUGS (2)
  1. RISSET [Suspect]
     Active Substance: RISPERIDONE
     Dosage: 60 MG
     Route: 048
     Dates: start: 20200131, end: 20200131
  2. ZOLOFT [Suspect]
     Active Substance: SERTRALINE HYDROCHLORIDE
     Dosage: 1400 MG
     Route: 048
     Dates: start: 20200131, end: 20200131

REACTIONS (4)
  - Suicide attempt [Unknown]
  - Hypotension [Unknown]
  - Seizure [Unknown]
  - Intentional overdose [Unknown]

NARRATIVE: CASE EVENT DATE: 20200131
